FAERS Safety Report 15821214 (Version 2)
Quarter: 2019Q1

REPORT INFORMATION
  Report Type: Spontaneous
  Country: US (occurrence: US)
  Receive Date: 20190114
  Receipt Date: 20190119
  Transmission Date: 20190417
  Serious: Yes (Other)
  Sender: FDA-Public Use
  Company Number: US-TEVA-2019-US-996050

PATIENT
  Sex: Male

DRUGS (2)
  1. QUETIAPINE FUMARATE. [Suspect]
     Active Substance: QUETIAPINE FUMARATE
     Indication: SOMNOLENCE
     Route: 065
     Dates: start: 2003
  2. QUETIAPINE FUMARATE. [Suspect]
     Active Substance: QUETIAPINE FUMARATE
     Indication: TOURETTE^S DISORDER

REACTIONS (6)
  - Heart rate increased [Unknown]
  - Angina pectoris [Unknown]
  - Tachycardia [Unknown]
  - Product size issue [Unknown]
  - Drug ineffective [Unknown]
  - Intentional product use issue [Unknown]
